FAERS Safety Report 6459940-4 (Version None)
Quarter: 2009Q4

REPORT INFORMATION
  Report Type: 
  Country: None (occurrence: None)
  Receive Date: 20091129
  Receipt Date: 20091117
  Transmission Date: 20100525
  Serious: Yes (Other)
  Sender: FDA-Public Use
  Company Number: PHFR2006GB03665

PATIENT
  Age: 33 Year
  Sex: Female

DRUGS (2)
  1. AREDIA [Suspect]
     Indication: COMPLEX REGIONAL PAIN SYNDROME
     Dosage: 30MG/DAY
     Route: 042
     Dates: start: 20060922, end: 20060922
  2. PARACETAMOL [Concomitant]

REACTIONS (2)
  - LYMPHADENOPATHY [None]
  - MUSCULAR WEAKNESS [None]
